FAERS Safety Report 19116618 (Version 1)
Quarter: 2021Q2

REPORT INFORMATION
  Report Type: Spontaneous
  Country: US (occurrence: US)
  Receive Date: 20210409
  Receipt Date: 20210409
  Transmission Date: 20210717
  Serious: No
  Sender: FDA-Public Use
  Company Number: US-JNJFOC-20210407200

PATIENT
  Sex: Female

DRUGS (1)
  1. WOMENS ROGAINE [Suspect]
     Active Substance: MINOXIDIL
     Indication: ALOPECIA
     Dosage: PRODUCT START DATE? YEARS AGO?PRODUCT STOP DATE?A YEAR AGO
     Route: 061

REACTIONS (2)
  - Inappropriate schedule of product administration [Unknown]
  - Alopecia [Unknown]

NARRATIVE: CASE EVENT DATE: 2021
